FAERS Safety Report 5276328-2 (Version None)
Quarter: 2007Q1

REPORT INFORMATION
  Report Type: 
  Country: None (occurrence: None)
  Receive Date: 20070326
  Receipt Date: 20070314
  Transmission Date: 20070707
  Serious: Yes (Other)
  Sender: FDA-Public Use
  Company Number: US-PFIZER INC-2007020535

PATIENT
  Sex: Female
  Weight: 99.8 kg

DRUGS (5)
  1. CHANTIX [Suspect]
     Indication: EX-SMOKER
  2. OMEPRAZOLE [Concomitant]
  3. LAMISIL [Concomitant]
     Route: 048
  4. CELEBREX [Concomitant]
  5. SERTRALINE [Concomitant]

REACTIONS (2)
  - PRURITUS [None]
  - RASH ERYTHEMATOUS [None]
